FAERS Safety Report 23585164 (Version 3)
Quarter: 2024Q2

REPORT INFORMATION
  Report Type: Spontaneous
  Country: JP (occurrence: JP)
  Receive Date: 20240301
  Receipt Date: 20240529
  Transmission Date: 20240716
  Serious: Yes (Death, Other)
  Sender: FDA-Public Use
  Company Number: JP-GENMAB-2024-00580

PATIENT
  Age: 83 Year
  Sex: Female
  Weight: 44 kg

DRUGS (13)
  1. EPKINLY [Suspect]
     Active Substance: EPCORITAMAB-BYSP
     Indication: B-cell lymphoma
     Dosage: 0.16 MILLIGRAM, SINGLE
     Route: 058
     Dates: start: 20240130, end: 20240130
  2. EPKINLY [Suspect]
     Active Substance: EPCORITAMAB-BYSP
     Dosage: 0.8 MILLIGRAM, SINGLE
     Route: 058
     Dates: start: 20240206, end: 20240206
  3. EPKINLY [Suspect]
     Active Substance: EPCORITAMAB-BYSP
     Dosage: 48 MILLIGRAM, WEEKLY, THIRD ADMINISTRATION, FOURTH ADMINISTRATION
     Route: 058
     Dates: start: 20240213, end: 20240220
  4. SULFAMETHOXAZOLE\TRIMETHOPRIM [Concomitant]
     Active Substance: SULFAMETHOXAZOLE\TRIMETHOPRIM
     Dosage: 0.5 DOSAGE FORM/DAY
     Route: 048
     Dates: start: 202010
  5. OMEGA-3-ACID ETHYL ESTERS [Concomitant]
     Active Substance: OMEGA-3-ACID ETHYL ESTERS
     Dosage: 1 DOSAGE FORM, 2G/DAY, FROM  BEFORE 2020
     Route: 048
  6. FEBUXOSTAT [Concomitant]
     Active Substance: FEBUXOSTAT
     Dosage: 1 DOSAGE FORM, 20MG/DAY
     Route: 048
     Dates: start: 202010
  7. ELIQUIS [Concomitant]
     Active Substance: APIXABAN
     Dosage: 4 DOSAGE FORM, 10MG/DAY, FROM  BEFORE 2020
     Route: 048
  8. LANSOPRAZOLE [Concomitant]
     Active Substance: LANSOPRAZOLE
     Dosage: 1 DOSAGE FORM, 15MG/DAY
     Route: 048
     Dates: start: 202010
  9. ACYCLOVIR [Concomitant]
     Active Substance: ACYCLOVIR
     Dosage: 5 DOSAGE FORM, 1000MG/DAY
     Route: 048
     Dates: start: 20240130
  10. PREDONINE [Concomitant]
     Active Substance: PREDNISOLONE
     Indication: Prophylaxis
     Dosage: 100 MILLIGRAM, ON DAY 1, DAY 2, DAY 3 AND DAY 4 OF ADMINISTRATION OF EPKINLY
     Dates: start: 20240130, end: 20240223
  11. DIPHENHYDRAMINE [Concomitant]
     Active Substance: DIPHENHYDRAMINE
     Indication: Prophylaxis
     Dosage: 5 DOSAGE FORM, 50MG, ON DAY 1OF ADMINISTRATION OF EPKINLY
     Dates: start: 20240130, end: 20240220
  12. CALONAL [Concomitant]
     Active Substance: ACETAMINOPHEN
     Indication: Prophylaxis
     Dosage: 4 DOSAGE FORM, 800MG, ON DAY 1OF ADMINISTRATION OF EPKINLY
     Dates: start: 20240130, end: 20240220
  13. ISOTONIC SODIUM CHLORIDE SOLUTION [Concomitant]
     Active Substance: SODIUM CHLORIDE
     Indication: Fluid replacement
     Dosage: 1000 MILLIMOLE/DAY

REACTIONS (6)
  - Sepsis [Fatal]
  - Cytokine release syndrome [Recovered/Resolved]
  - Urinary tract infection [Fatal]
  - B-cell lymphoma [Unknown]
  - Neutrophil count decreased [Not Recovered/Not Resolved]
  - Pyrexia [Unknown]

NARRATIVE: CASE EVENT DATE: 20240101
